FAERS Safety Report 20038930 (Version 6)
Quarter: 2023Q2

REPORT INFORMATION
  Report Type: Spontaneous
  Country: US (occurrence: US)
  Receive Date: 20211105
  Receipt Date: 20230410
  Transmission Date: 20230721
  Serious: Yes (Other)
  Sender: FDA-Public Use
  Company Number: US-PFIZER INC-2021481277

PATIENT
  Age: 77 Year
  Sex: Female

DRUGS (1)
  1. XELJANZ XR [Suspect]
     Active Substance: TOFACITINIB CITRATE
     Dosage: 11 MG

REACTIONS (6)
  - Musculoskeletal disorder [Unknown]
  - Arthropathy [Unknown]
  - Gait inability [Unknown]
  - Pain [Unknown]
  - Anxiety [Unknown]
  - Arthritis [Unknown]

NARRATIVE: CASE EVENT DATE: 20230101
